FAERS Safety Report 8001588-4 (Version None)
Quarter: 2011Q4

REPORT INFORMATION
  Report Type: 
  Country: None (occurrence: None)
  Receive Date: 20111222
  Receipt Date: 20111220
  Transmission Date: 20120403
  Serious: Yes (Hospitalization)
  Sender: FDA-Public Use
  Company Number: GB-SHIRE-ALL1-2011-03681

PATIENT
  Sex: Male
  Weight: 19.3 kg

DRUGS (2)
  1. IDURSULFASE [Suspect]
     Indication: MUCOPOLYSACCHARIDOSIS II
     Dosage: 0.44 MG/KG, 1X/WEEK
     Route: 041
     Dates: start: 20070405
  2. CHLORPHENIRAMINE MALEATE [Concomitant]
     Indication: PREMEDICATION
     Dosage: UNK, UNKNOWN
     Route: 065

REACTIONS (1)
  - DEVICE RELATED INFECTION [None]
